FAERS Safety Report 11158868 (Version 1)
Quarter: 2015Q2

REPORT INFORMATION
  Report Type: Spontaneous
  Country: US (occurrence: None)
  Receive Date: 20150601
  Receipt Date: 20150601
  Transmission Date: 20150821
  Serious: Yes (Other)
  Sender: FDA-Public Use
  Company Number: None

PATIENT
  Age: 8 Year
  Sex: Female
  Weight: 27.22 kg

DRUGS (2)
  1. CHILDREN^S DAILY VITAMINS [Concomitant]
  2. MUCINEX [Suspect]
     Active Substance: GUAIFENESIN
     Dosage: 1-2 PACKETS EVERY 4 HOURS
     Route: 048
     Dates: start: 20150528, end: 20150529

REACTIONS (2)
  - Vomiting [None]
  - Diarrhoea [None]

NARRATIVE: CASE EVENT DATE: 20150528
